FAERS Safety Report 9484840 (Version 1)
Quarter: 2013Q3

REPORT INFORMATION
  Report Type: Spontaneous
  Country: GB (occurrence: GB)
  Receive Date: 20130828
  Receipt Date: 20130828
  Transmission Date: 20140515
  Serious: Yes (Death, Hospitalization)
  Sender: FDA-Public Use
  Company Number: GB-MYLANLABS-2013S1018379

PATIENT
  Age: 52 Year
  Sex: Female

DRUGS (3)
  1. LANSOPRAZOLE [Suspect]
     Indication: DYSPEPSIA
  2. DEXAMETHASONE [Suspect]
     Indication: INFLAMMATION
     Dates: start: 20130603
  3. DEXAMETHASONE [Suspect]
     Indication: INFLAMMATION
     Dates: start: 20130620

REACTIONS (14)
  - Large intestine perforation [Recovered/Resolved]
  - Confusional state [Unknown]
  - Cushing^s syndrome [Unknown]
  - Death [Fatal]
  - Delirium [Unknown]
  - Dysstasia [Unknown]
  - Gait disturbance [Unknown]
  - Incoherent [Unknown]
  - Dyspepsia [Unknown]
  - Malaise [Unknown]
  - Aphagia [Unknown]
  - Depression [Unknown]
  - Amnesia [Unknown]
  - Muscle atrophy [Unknown]
